FAERS Safety Report 7208879-5 (Version None)
Quarter: 2011Q1

REPORT INFORMATION
  Report Type: 
  Country: None (occurrence: None)
  Receive Date: 20110104
  Receipt Date: 20101221
  Transmission Date: 20110831
  Serious: Yes (Disabling)
  Sender: FDA-Public Use
  Company Number: PHHY2010US83463

PATIENT
  Sex: Male
  Weight: 78 kg

DRUGS (1)
  1. TASIGNA [Suspect]
     Indication: CHRONIC MYELOID LEUKAEMIA
     Dosage: 300 MG, BID
     Route: 048
     Dates: start: 20101202, end: 20101214

REACTIONS (8)
  - DEPRESSED LEVEL OF CONSCIOUSNESS [None]
  - MYALGIA [None]
  - BACK PAIN [None]
  - NECK PAIN [None]
  - ARTHRALGIA [None]
  - INSOMNIA [None]
  - TRISMUS [None]
  - PAIN IN EXTREMITY [None]
